FAERS Safety Report 22144104 (Version 1)
Quarter: 2023Q1

REPORT INFORMATION
  Report Type: Spontaneous
  Country: US (occurrence: US)
  Receive Date: 20230327
  Receipt Date: 20230327
  Transmission Date: 20230418
  Serious: No
  Sender: FDA-Public Use
  Company Number: US-ALXN-A202303744

PATIENT
  Sex: Male

DRUGS (1)
  1. SOLIRIS [Suspect]
     Active Substance: ECULIZUMAB
     Indication: Myasthenia gravis
     Dosage: 1200 MG, AT WEEK 4, THEN EVERY 3 WEEKS THEREAFTER
     Route: 042
     Dates: start: 20220831

REACTIONS (1)
  - Muscle spasms [Not Recovered/Not Resolved]
